FAERS Safety Report 4524566-6 (Version None)
Quarter: 2004Q4

REPORT INFORMATION
  Report Type: 
  Country: None (occurrence: None)
  Receive Date: 20041117
  Receipt Date: 20040414
  Transmission Date: 20050328
  Serious: Yes (Hospitalization)
  Sender: FDA-Public Use
  Company Number: US-JNJFOC-20040400198

PATIENT
  Age: 87 Year
  Sex: Female
  Weight: 63.5036 kg

DRUGS (8)
  1. LEVAQUIN [Suspect]
     Indication: SKIN ULCER
     Dosage: 500 MG, ORAL
     Route: 048
     Dates: start: 20040325, end: 20040327
  2. AMARYL [Concomitant]
  3. ALTACE (RAMIPRIL) [Concomitant]
  4. DIGOXIN [Concomitant]
  5. KCL (POTASSIUM CHLORIDE) [Concomitant]
  6. LASIX [Concomitant]
  7. DILTIAZEM [Concomitant]
  8. CARDIZEM [Concomitant]

REACTIONS (1)
  - HYPOGLYCAEMIA [None]
